FAERS Safety Report 7308514-1 (Version None)
Quarter: 2011Q1

REPORT INFORMATION
  Report Type: 
  Country: None (occurrence: None)
  Receive Date: 20110223
  Receipt Date: 20101206
  Transmission Date: 20110831
  Serious: Yes (Hospitalization, Other)
  Sender: FDA-Public Use
  Company Number: US-BAYER-201024550NA

PATIENT
  Sex: Female
  Weight: 75 kg

DRUGS (18)
  1. YAZ [Suspect]
     Indication: MENSTRUAL CYCLE MANAGEMENT
  2. VASOTEC [Concomitant]
     Dosage: UNK
     Dates: start: 19830101
  3. SPRINTEC [Concomitant]
     Dosage: UNK
     Dates: start: 20090129
  4. YAZ [Suspect]
     Indication: CONTRACEPTION
     Dosage: UNK UNK, QD
     Route: 048
     Dates: start: 20080301, end: 20080401
  5. ORTHO TRI-CYCLEN [Concomitant]
     Indication: ORAL CONTRACEPTION
  6. OVCON-35 [Concomitant]
     Indication: ORAL CONTRACEPTION
     Dosage: UNK
     Dates: start: 20070110, end: 20070201
  7. INSULIN [Concomitant]
     Indication: DIABETES MELLITUS
     Dosage: UNK
     Dates: start: 19830101
  8. LEVAQUIN [Concomitant]
     Dosage: UNK
     Dates: start: 19830101
  9. LAMICTAL [Concomitant]
     Indication: CONVULSION
     Dosage: UNK
     Dates: start: 20080101
  10. YASMIN [Suspect]
     Indication: ACNE
  11. TOPAMAX [Concomitant]
  12. YASMIN [Suspect]
     Indication: CONTRACEPTION
     Dosage: UNK
     Dates: start: 20070301, end: 20080201
  13. OVCON-35 [Concomitant]
     Dosage: UNK
     Dates: start: 20070202
  14. ENALAPRIL MALEATE [Concomitant]
     Dosage: UNK
     Dates: start: 20080101
  15. YASMIN [Suspect]
     Indication: MENSTRUAL CYCLE MANAGEMENT
  16. KEPPRA [Concomitant]
     Indication: CONVULSION
  17. YAZ [Suspect]
     Indication: ACNE
  18. SPRINTEC [Concomitant]
     Indication: ORAL CONTRACEPTION
     Dosage: UNK
     Dates: start: 20080515, end: 20090101

REACTIONS (11)
  - LYMPHADENOPATHY [None]
  - GASTRITIS [None]
  - REFLUX OESOPHAGITIS [None]
  - ABDOMINAL PAIN LOWER [None]
  - DUODENITIS [None]
  - CHOLELITHIASIS [None]
  - CONVULSION [None]
  - ABDOMINAL PAIN UPPER [None]
  - GALLBLADDER CHOLESTEROLOSIS [None]
  - BILIARY COLIC [None]
  - CHOLECYSTITIS [None]
